FAERS Safety Report 9358304 (Version 2)
Quarter: 2013Q3

REPORT INFORMATION
  Report Type: Spontaneous
  Country: US (occurrence: US)
  Receive Date: 20130620
  Receipt Date: 20130709
  Transmission Date: 20140515
  Serious: Yes (Hospitalization)
  Sender: FDA-Public Use
  Company Number: US-GILEAD-2013-0076758

PATIENT
  Age: 33 Year
  Sex: Female

DRUGS (1)
  1. LETAIRIS [Suspect]
     Indication: PORTOPULMONARY HYPERTENSION
     Dosage: 5 MG, QD
     Route: 048
     Dates: start: 20130531

REACTIONS (5)
  - Abdominal pain upper [Unknown]
  - Dyspnoea [Unknown]
  - Vomiting [Unknown]
  - Hot flush [Unknown]
  - Fear [Unknown]
